FAERS Safety Report 5904678-2 (Version None)
Quarter: 2008Q4

REPORT INFORMATION
  Report Type: 
  Country: None (occurrence: None)
  Receive Date: 20081001
  Receipt Date: 20080312
  Transmission Date: 20090506
  Serious: No
  Sender: FDA-Public Use
  Company Number: FR-JNJFOC-20080802771

PATIENT
  Age: 41 Year
  Sex: Male

DRUGS (3)
  1. IXPRIM [Suspect]
     Route: 048
  2. IXPRIM [Suspect]
     Route: 048
  3. IXPRIM [Suspect]
     Indication: DRUG USE FOR UNKNOWN INDICATION
     Route: 048

REACTIONS (1)
  - ULCERATIVE KERATITIS [None]
